FAERS Safety Report 23578501 (Version 2)
Quarter: 2024Q3

REPORT INFORMATION
  Report Type: Spontaneous
  Country: US (occurrence: US)
  Receive Date: 20240229
  Receipt Date: 20240809
  Transmission Date: 20241017
  Serious: Yes (Hospitalization)
  Sender: SANDOZ
  Company Number: US-SANDOZ-SDZ2024US019978

PATIENT
  Age: 52 Year
  Sex: Male
  Weight: 93.4 kg

DRUGS (2)
  1. CEFTRIAXONE [Suspect]
     Active Substance: CEFTRIAXONE\CEFTRIAXONE SODIUM
     Indication: Product used for unknown indication
     Dosage: 1 G
     Route: 042
  2. ELRANATAMAB [Suspect]
     Active Substance: ELRANATAMAB
     Indication: Product used for unknown indication
     Dosage: 1 G (CYCLE 7 DAY 1 (C7D1))
     Route: 042
     Dates: start: 20231018

REACTIONS (3)
  - Sinusitis [Recovered/Resolved]
  - Blood immunoglobulin G decreased [Recovered/Resolved]
  - Pyrexia [Recovered/Resolved]

NARRATIVE: CASE EVENT DATE: 20231110
